FAERS Safety Report 16200213 (Version 1)
Quarter: 2019Q2

REPORT INFORMATION
  Report Type: Spontaneous
  Country: US (occurrence: US)
  Receive Date: 20190415
  Receipt Date: 20190415
  Transmission Date: 20190711
  Serious: No
  Sender: FDA-Public Use
  Company Number: US-SA-2019SA104158

PATIENT
  Age: 23 Year
  Sex: Male

DRUGS (1)
  1. DUPIXENT [Suspect]
     Active Substance: DUPILUMAB
     Indication: ECZEMA
     Dosage: UNK UNK, QOW
     Dates: start: 201706

REACTIONS (7)
  - Lung disorder [Unknown]
  - Joint injury [Unknown]
  - Eye irritation [Unknown]
  - Hypersensitivity [Unknown]
  - Urticaria [Unknown]
  - Erythema [Unknown]
  - Anxiety [Unknown]
